FAERS Safety Report 4605905-4 (Version None)
Quarter: 2005Q1

REPORT INFORMATION
  Report Type: 
  Country: None (occurrence: None)
  Receive Date: 20050311
  Receipt Date: 20050301
  Transmission Date: 20050727
  Serious: Yes (Hospitalization)
  Sender: FDA-Public Use
  Company Number: US-JNJFOC-20050300838

PATIENT
  Age: 70 Year
  Sex: Male

DRUGS (1)
  1. LEVAQUIN [Suspect]

REACTIONS (1)
  - DEMENTIA [None]
